FAERS Safety Report 4567215-3 (Version None)
Quarter: 2005Q1

REPORT INFORMATION
  Report Type: 
  Country: None (occurrence: None)
  Receive Date: 20050127
  Receipt Date: 20050113
  Transmission Date: 20050727
  Serious: Yes (Other)
  Sender: FDA-Public Use
  Company Number: 2004114389

PATIENT
  Age: 78 Year
  Sex: Female
  Weight: 55.3388 kg

DRUGS (2)
  1. BEXTRA [Suspect]
     Indication: ARTHRITIS
     Dosage: 20 MG (20 MG 1 IN 1 D) ORAL
     Route: 048
     Dates: start: 20040101, end: 20041101
  2. ZOLPIDEM TARTRATE [Concomitant]

REACTIONS (1)
  - CHEST PAIN [None]
